FAERS Safety Report 9200519 (Version 1)
Quarter: 2013Q1

REPORT INFORMATION
  Report Type: Spontaneous
  Country: GB (occurrence: GB)
  Receive Date: 20130329
  Receipt Date: 20130329
  Transmission Date: 20140127
  Serious: Yes (Hospitalization, Other)
  Sender: FDA-Public Use
  Company Number: GB-B.I. PHARMACEUTICALS,INC./RIDGEFIELD-2013-UK-00652UK

PATIENT
  Age: 74 Year
  Sex: Male
  Weight: 82 kg

DRUGS (5)
  1. PRADAXA [Suspect]
     Dates: start: 20130227
  2. ASPIRIN [Concomitant]
     Dates: start: 20130118
  3. BUMETANIDE [Concomitant]
     Dates: start: 20121130
  4. LANSOPRAZOLE [Concomitant]
     Dates: start: 20130305
  5. SIMVASTATIN [Concomitant]
     Dates: start: 20130305

REACTIONS (3)
  - Chest pain [Recovered/Resolved]
  - Dysphagia [Unknown]
  - Odynophagia [Recovered/Resolved]
